FAERS Safety Report 20678335 (Version 2)
Quarter: 2022Q2

REPORT INFORMATION
  Report Type: Report from Study
  Country: US (occurrence: US)
  Receive Date: 20220406
  Receipt Date: 20220526
  Transmission Date: 20220720
  Serious: Yes (Hospitalization, Other)
  Sender: FDA-Public Use
  Company Number: US-CELGENE-USA-20210106606

PATIENT
  Age: 68 Year
  Sex: Male
  Weight: 70.7 kg

DRUGS (35)
  1. REVLIMID [Suspect]
     Active Substance: LENALIDOMIDE
     Indication: Plasma cell myeloma
     Dosage: 21 DAYS OUT OF A 28-DAY CYCLE
     Route: 048
     Dates: start: 201605
  2. REVLIMID [Suspect]
     Active Substance: LENALIDOMIDE
     Dosage: 20 MILLIGRAM
     Route: 048
     Dates: start: 201607
  3. REVLIMID [Suspect]
     Active Substance: LENALIDOMIDE
     Dosage: 10 MILLIGRAM; 21 IN 21 DAYS
     Route: 048
     Dates: start: 20200127
  4. REVLIMID [Suspect]
     Active Substance: LENALIDOMIDE
     Dosage: 21 OF 28 DAYS
     Route: 048
  5. KYPROLIS [Suspect]
     Active Substance: CARFILZOMIB
     Indication: Product used for unknown indication
     Dosage: FREQUENCY TEXT: NOT PROVIDED
     Route: 065
  6. SPIRONOLACTONE [Concomitant]
     Active Substance: SPIRONOLACTONE
     Indication: Product used for unknown indication
     Dosage: FREQUENCY TEXT: NOT PROVIDED
     Route: 048
  7. ZARXIO [Concomitant]
     Active Substance: FILGRASTIM-SNDZ
     Indication: Product used for unknown indication
     Dosage: FREQUENCY TEXT: NOT PROVIDED
     Route: 065
  8. NEUPOGEN [Concomitant]
     Active Substance: FILGRASTIM
     Indication: Product used for unknown indication
     Dosage: FREQUENCY TEXT: NOT PROVIDED
     Route: 065
  9. LOVENOX [Concomitant]
     Active Substance: ENOXAPARIN SODIUM
     Indication: Product used for unknown indication
     Dosage: FREQUENCY TEXT: NOT PROVIDED
     Route: 065
  10. IMODIUM [Concomitant]
     Active Substance: LOPERAMIDE HYDROCHLORIDE
     Indication: Product used for unknown indication
     Dosage: FREQUENCY TEXT: NOT PROVIDED
     Route: 048
  11. ENOXAPARIN [Concomitant]
     Active Substance: ENOXAPARIN
     Indication: Product used for unknown indication
     Dosage: FREQUENCY TEXT: NOT PROVIDED
     Route: 065
  12. ASPIRIN [Concomitant]
     Active Substance: ASPIRIN
  13. ENTRESTO [Concomitant]
     Active Substance: SACUBITRIL\VALSARTAN
  14. HYDROXYZINE [Concomitant]
     Active Substance: HYDROXYZINE HYDROCHLORIDE
  15. MOMETASONE FUROATE [Concomitant]
     Active Substance: MOMETASONE FUROATE
  16. EPLERENONE [Concomitant]
     Active Substance: EPLERENONE
  17. FUROSEMIDE [Concomitant]
     Active Substance: FUROSEMIDE
  18. PANTOPRAZOLE [Concomitant]
     Active Substance: PANTOPRAZOLE
  19. TADALAFIL [Concomitant]
     Active Substance: TADALAFIL
  20. MAGNESIUM SALICYLATE [Concomitant]
     Active Substance: MAGNESIUM SALICYLATE
  21. ASPIRIN\OXYCODONE HYDROCHLORIDE [Concomitant]
     Active Substance: ASPIRIN\OXYCODONE HYDROCHLORIDE
  22. ENTECAVIR [Concomitant]
     Active Substance: ENTECAVIR
  23. ATORVASTATIN [Concomitant]
     Active Substance: ATORVASTATIN
  24. COLESEVELAM [Concomitant]
     Active Substance: COLESEVELAM
  25. MIRALAX [Concomitant]
     Active Substance: POLYETHYLENE GLYCOL 3350
  26. TACROLIMUS [Concomitant]
     Active Substance: TACROLIMUS
  27. METOPROLOL [Concomitant]
     Active Substance: METOPROLOL
  28. CALCIUM 600 + D3 PLUS MINERALS [Concomitant]
  29. XARELTO [Concomitant]
     Active Substance: RIVAROXABAN
  30. LORAZEPAM [Concomitant]
     Active Substance: LORAZEPAM
  31. VITAMIN B12 [Concomitant]
     Active Substance: CYANOCOBALAMIN
  32. MIRTAZAPINE [Concomitant]
     Active Substance: MIRTAZAPINE
  33. ONDANSETRON [Concomitant]
     Active Substance: ONDANSETRON
  34. VITRON C [ASCORBIC ACID;FERROUS FUMARATE] [Concomitant]
  35. LISINOPRIL [Concomitant]
     Active Substance: LISINOPRIL

REACTIONS (9)
  - Platelet count decreased [Unknown]
  - Neuropathy peripheral [Not Recovered/Not Resolved]
  - Myocardial infarction [Not Recovered/Not Resolved]
  - Deep vein thrombosis [Not Recovered/Not Resolved]
  - Red blood cell count decreased [Unknown]
  - Diarrhoea [Not Recovered/Not Resolved]
  - Pruritus [Not Recovered/Not Resolved]
  - Rash [Recovered/Resolved]
  - Fatigue [Not Recovered/Not Resolved]
